FAERS Safety Report 11810225 (Version 6)
Quarter: 2016Q3

REPORT INFORMATION
  Report Type: Spontaneous
  Country: US (occurrence: US)
  Receive Date: 20151208
  Receipt Date: 20160713
  Transmission Date: 20161109
  Serious: Yes (Hospitalization, Other)
  Sender: FDA-Public Use
  Company Number: US-SUNOVION-2015SUN001163

PATIENT
  Age: 30 Year
  Sex: Female
  Weight: 92.52 kg

DRUGS (15)
  1. SERTRALINE [Concomitant]
     Active Substance: SERTRALINE HYDROCHLORIDE
     Indication: DEPRESSION
     Dosage: 100 MG, QD
     Route: 065
     Dates: start: 2013
  2. FERROUS GLUCONATE [Concomitant]
     Active Substance: FERROUS GLUCONATE
     Dosage: 324 MG, QD
     Route: 048
  3. MELATONIN [Concomitant]
     Active Substance: MELATONIN
     Dosage: 3 MG, HS
     Route: 048
  4. VITAMIN D2 [Concomitant]
     Active Substance: ERGOCALCIFEROL
     Dosage: 50000 DF, EVERY TWO WEEKS
     Route: 048
  5. TEGRETOL [Concomitant]
     Active Substance: CARBAMAZEPINE
     Dosage: 100 MG, QD
     Route: 065
  6. LYRICA [Suspect]
     Active Substance: PREGABALIN
     Dosage: 28800 MG, SINGLE
     Route: 065
     Dates: start: 20150416, end: 20150416
  7. FOLVITE [Concomitant]
     Active Substance: FOLIC ACID
     Indication: EPILEPSY
     Dosage: 2 MG, BID
     Route: 048
  8. LYRICA [Suspect]
     Active Substance: PREGABALIN
     Indication: EPILEPSY
     Dosage: UNK
     Route: 065
     Dates: start: 20100813
  9. APTIOM [Suspect]
     Active Substance: ESLICARBAZEPINE ACETATE
     Indication: PARTIAL SEIZURES
     Dosage: 800 MG, HS
     Route: 048
     Dates: start: 201412, end: 20150417
  10. LYRICA [Suspect]
     Active Substance: PREGABALIN
     Dosage: UNK
     Route: 065
  11. DEPAKOTE [Concomitant]
     Active Substance: DIVALPROEX SODIUM
     Dosage: 500 MG, BID
     Route: 048
  12. KEPPRA [Concomitant]
     Active Substance: LEVETIRACETAM
     Dosage: UNK
     Route: 065
  13. LYRICA [Suspect]
     Active Substance: PREGABALIN
     Dosage: 150 MG, BID
     Route: 065
  14. SERTRALINE [Concomitant]
     Active Substance: SERTRALINE HYDROCHLORIDE
     Dosage: 200 MG, QD
     Route: 065
  15. TRILEPTAL [Concomitant]
     Active Substance: OXCARBAZEPINE
     Dosage: UNK
     Route: 065

REACTIONS (26)
  - Abasia [Recovered/Resolved]
  - Weight increased [Unknown]
  - Dreamy state [Unknown]
  - Movement disorder [Unknown]
  - Confusional state [Unknown]
  - Tardive dyskinesia [Unknown]
  - Depressed mood [Unknown]
  - Aggression [Unknown]
  - Memory impairment [Unknown]
  - Suicide attempt [Recovered/Resolved]
  - Suicidal ideation [Recovered/Resolved]
  - Irritability [Unknown]
  - Time perception altered [Unknown]
  - Hunger [Unknown]
  - Diarrhoea [Unknown]
  - Impulsive behaviour [Unknown]
  - Speech disorder [Unknown]
  - Hypoglycaemia [Unknown]
  - Dizziness [Unknown]
  - Aphasia [Unknown]
  - Seizure [Recovered/Resolved]
  - Urinary incontinence [Unknown]
  - Hyponatraemia [Unknown]
  - Fatigue [Unknown]
  - Partial seizures [Recovered/Resolved]
  - Feeling abnormal [Unknown]

NARRATIVE: CASE EVENT DATE: 2014
